FAERS Safety Report 19207254 (Version 2)
Quarter: 2021Q2

REPORT INFORMATION
  Report Type: Spontaneous
  Country: US (occurrence: US)
  Receive Date: 20210503
  Receipt Date: 20210507
  Transmission Date: 20210717
  Serious: No
  Sender: FDA-Public Use
  Company Number: US-GLAXOSMITHKLINE-USCH2021AMR022876

PATIENT
  Sex: Female
  Weight: 82.55 kg

DRUGS (2)
  1. IBUPROFEN. [Suspect]
     Active Substance: IBUPROFEN
     Indication: LYMPHADENOPATHY
     Dosage: 2 DF (200 MG TABLETS)
  2. WARM COMPRESS [Concomitant]
     Indication: LYMPHADENOPATHY
     Dosage: UNK

REACTIONS (1)
  - Product use in unapproved indication [Unknown]
